FAERS Safety Report 4975359-7 (Version None)
Quarter: 2006Q2

REPORT INFORMATION
  Report Type: 
  Country: None (occurrence: None)
  Receive Date: 20060418
  Receipt Date: 20050218
  Transmission Date: 20061013
  Serious: Yes (Hospitalization, Disabling)
  Sender: FDA-Public Use
  Company Number: US-MERCK-0502USA02810

PATIENT
  Age: 45 Year
  Sex: Female
  Weight: 77 kg

DRUGS (21)
  1. VIOXX [Suspect]
     Indication: ARTHRITIS
     Route: 048
     Dates: start: 20000101, end: 20040202
  2. ZITHROMAX [Concomitant]
     Route: 048
  3. TYLENOL (CAPLET) [Concomitant]
     Route: 048
  4. CYCLOBENZAPRINE HYDROCHLORIDE [Concomitant]
     Route: 048
  5. TUSSIN DM [Concomitant]
     Route: 048
  6. ETODOLAC [Concomitant]
     Route: 048
  7. AUGMENTIN '125' [Concomitant]
     Route: 048
  8. ACETAMINOPHEN AND CODEINE [Concomitant]
     Route: 065
  9. HYDROCODONE BITARTRATE [Concomitant]
     Route: 065
  10. IBUPROFEN [Concomitant]
     Route: 048
  11. CEPHALEXIN [Concomitant]
     Route: 065
  12. ENDOCET [Concomitant]
     Route: 065
  13. METOPROLOL [Concomitant]
     Route: 048
  14. ASPIRIN [Concomitant]
     Route: 048
  15. PROTONIX [Concomitant]
     Route: 048
  16. AMOXICILLIN AND CLAVULANATE POTASSIUM [Concomitant]
     Route: 048
  17. HORMONES (UNSPECIFIED) [Concomitant]
     Route: 065
     Dates: end: 20030724
  18. CELEXA [Concomitant]
     Route: 065
  19. ALORA [Concomitant]
     Route: 065
  20. DICLOFENAC SODIUM [Concomitant]
     Route: 065
  21. SYNTHROID [Concomitant]
     Route: 065

REACTIONS (14)
  - ANGINA UNSTABLE [None]
  - ASTHENIA [None]
  - CHEST PAIN [None]
  - COLD SWEAT [None]
  - CORONARY ARTERY DISEASE [None]
  - CORONARY ARTERY STENOSIS [None]
  - DYSLIPIDAEMIA [None]
  - DYSPNOEA [None]
  - ECONOMIC PROBLEM [None]
  - HYPERHIDROSIS [None]
  - HYPERTENSION [None]
  - HYPOAESTHESIA [None]
  - INJURY [None]
  - NAUSEA [None]
